FAERS Safety Report 4324627-0 (Version None)
Quarter: 2004Q1

REPORT INFORMATION
  Report Type: 
  Country: None (occurrence: None)
  Receive Date: 20040323
  Receipt Date: 20040311
  Transmission Date: 20041129
  Serious: Yes (Hospitalization)
  Sender: FDA-Public Use
  Company Number: HQWYE744611MAR04

PATIENT
  Age: 66 Year
  Sex: Male

DRUGS (5)
  1. CORDARONE [Suspect]
     Indication: ATRIAL FIBRILLATION
     Dosage: 200 MG 1X PER 1 DAY, ORAL
     Route: 048
     Dates: start: 20040115, end: 20040202
  2. ATACAND [Suspect]
     Indication: ATRIAL FIBRILLATION
     Dosage: 1 DOSE 1X PER 1 DAY, ORAL
     Route: 048
     Dates: start: 20040115, end: 20040202
  3. INDAPAMIDE [Suspect]
     Indication: ATRIAL FIBRILLATION
     Dosage: 1 DOSE 1X PER 1 DAY, ORAL
     Route: 048
     Dates: start: 20040115, end: 20040202
  4. RYTHMOL [Suspect]
     Indication: ATRIAL FIBRILLATION
     Dosage: 300 MG 2X PER 1 DAY, ORAL
     Route: 048
     Dates: start: 20040115, end: 20040202
  5. PREVISCAN (FLUINDIONE) [Concomitant]

REACTIONS (1)
  - DRUG ERUPTION [None]
